FAERS Safety Report 9893763 (Version 1)
Quarter: 2014Q1

REPORT INFORMATION
  Report Type: Spontaneous
  Country: DK (occurrence: CA)
  Receive Date: 20140213
  Receipt Date: 20140213
  Transmission Date: 20141002
  Serious: Yes (Other)
  Sender: FDA-Public Use
  Company Number: CA-FRI-1000054196

PATIENT
  Age: 48 Year
  Sex: Male
  Weight: 104 kg

DRUGS (8)
  1. ESCITALOPRAM [Suspect]
     Dosage: 10 MG
     Route: 050
  2. CYMBALTA [Suspect]
     Dosage: 60 MG
     Route: 048
  3. ASA [Concomitant]
  4. ATENOLOL [Concomitant]
  5. MULTAQ [Concomitant]
  6. PERCOCET [Concomitant]
  7. SYNTHROID [Concomitant]
  8. ZOPICLONE [Concomitant]

REACTIONS (9)
  - Injury [Recovered/Resolved]
  - Condition aggravated [Recovered/Resolved]
  - Hallucination [Recovered/Resolved]
  - Hypervigilance [Recovered/Resolved]
  - Abnormal dreams [Recovered/Resolved]
  - Depressed mood [Recovered/Resolved]
  - Vomiting [Recovered/Resolved]
  - Tremor [Recovered/Resolved]
  - Anxiety [Recovered/Resolved]
